FAERS Safety Report 9141079 (Version 1)
Quarter: 2013Q1

REPORT INFORMATION
  Report Type: Spontaneous
  Country: FR (occurrence: FR)
  Receive Date: 20130305
  Receipt Date: 20130305
  Transmission Date: 20140127
  Serious: Yes (Hospitalization)
  Sender: FDA-Public Use
  Company Number: FR-B.I. PHARMACEUTICALS,INC./RIDGEFIELD-2013-FF-00588FF

PATIENT
  Sex: Male

DRUGS (15)
  1. ATROVENT [Suspect]
     Dosage: 20MCG/DOSE
     Route: 055
     Dates: start: 20121020, end: 20121201
  2. TAHOR [Suspect]
     Dosage: 80 MG
     Route: 048
     Dates: start: 20120927, end: 20121205
  3. DOLIPRANE [Suspect]
     Dosage: 3000 MG
     Route: 048
     Dates: start: 20121119, end: 20121206
  4. DOLIPRANE [Suspect]
     Dosage: 3000 MG
     Route: 048
     Dates: start: 20130103
  5. ATARAX [Suspect]
     Dosage: 25 MG
     Route: 048
     Dates: start: 20121122, end: 20121202
  6. MIANSERINE [Suspect]
     Dosage: 10 MG
     Route: 048
     Dates: start: 20121203, end: 20121205
  7. GLUCOPHAGE [Suspect]
     Route: 048
     Dates: start: 20121012, end: 20121110
  8. ECONAZOLE [Suspect]
     Dosage: 1%
     Route: 061
     Dates: start: 20121103, end: 20121121
  9. TRANSIPEG [Suspect]
     Route: 048
     Dates: start: 20121109, end: 20121121
  10. UMULINE RAPIDE [Suspect]
     Route: 058
     Dates: start: 20120927, end: 20121127
  11. KARDEGIC [Concomitant]
  12. LOVENOX [Concomitant]
  13. INEXIUM [Concomitant]
  14. PROZAC [Concomitant]
  15. EDUCTYL [Concomitant]
     Route: 054

REACTIONS (1)
  - Hepatitis [Not Recovered/Not Resolved]
